FAERS Safety Report 9676479 (Version 1)
Quarter: 2013Q4

REPORT INFORMATION
  Report Type: Spontaneous
  Country: US (occurrence: US)
  Receive Date: 20131107
  Receipt Date: 20131107
  Transmission Date: 20140711
  Serious: Yes (Other)
  Sender: FDA-Public Use
  Company Number: US-PFIZER INC-2013316916

PATIENT
  Sex: 0

DRUGS (1)
  1. ALPRAZOLAM [Suspect]
     Dosage: TAKEN HALF OF A 0.25 MG OF ALPRAZOLAM EVERY ONCE IN AWHILE
     Dates: end: 2008

REACTIONS (2)
  - Road traffic accident [Unknown]
  - Wrong technique in drug usage process [Unknown]
